FAERS Safety Report 7555831-6 (Version None)
Quarter: 2011Q2

REPORT INFORMATION
  Report Type: 
  Country: None (occurrence: None)
  Receive Date: 20110618
  Receipt Date: 20110607
  Transmission Date: 20111010
  Serious: Yes (Death)
  Sender: FDA-Public Use
  Company Number: GB-BAYER-201034370GPV

PATIENT
  Age: 63 Year
  Sex: Male
  Weight: 93 kg

DRUGS (6)
  1. SORAFENIB (RAF KINASE INHIBITOR) [Suspect]
     Dosage: 400 MG, BID
     Dates: start: 20080807, end: 20090101
  2. BENDROFLUMETHIAZIDE [Concomitant]
     Dosage: 2.5 MG, UNK
  3. ASPIRIN [Concomitant]
     Dosage: 75 MG, UNK
  4. CARDICOR [Concomitant]
     Dosage: 2.5 MG, UNK
  5. PLACEBO [Suspect]
     Indication: RENAL CELL CARCINOMA
     Dosage: 800 MG (DAILY DOSE), BID, ORAL
     Route: 048
     Dates: start: 20090903, end: 20100225
  6. RAMIPRIL [Concomitant]
     Dosage: 215 MG, UNK

REACTIONS (2)
  - CARDIAC ARREST [None]
  - MYOCARDIAL ISCHAEMIA [None]
